FAERS Safety Report 26211833 (Version 1)
Quarter: 2025Q4

REPORT INFORMATION
  Report Type: Spontaneous
  Country: EU (occurrence: EU)
  Receive Date: 20251230
  Receipt Date: 20251230
  Transmission Date: 20260117
  Serious: Yes (Other)
  Sender: ALKEM
  Company Number: EU-ALKEM LABORATORIES LIMITED-DE-ALKEM-2025-13986

PATIENT
  Age: 16 Year
  Sex: Female
  Weight: 100 kg

DRUGS (3)
  1. IBUPROFEN [Suspect]
     Active Substance: IBUPROFEN
     Indication: Product used for unknown indication
     Dosage: UNK, QD,UNKNOWN QUANTITY OF TABLET(S), LIKELY EXPOSURE, 1 ONLY
     Route: 048
     Dates: start: 20251207, end: 20251207
  2. ACETAMINOPHEN [Suspect]
     Active Substance: ACETAMINOPHEN
     Indication: Product used for unknown indication
     Dosage: UNK, QD, UNKNOWN QUANTITY OF TABLET(S), LIKELY EXPOSURE, 1 ONLY
     Route: 065
     Dates: start: 20251207, end: 20251207
  3. ACETAMINOPHEN\DEXTROMETHORPHAN HYDROBROMIDE\DOXYLAMINE\EPHEDRINE SULFA [Suspect]
     Active Substance: ACETAMINOPHEN\DEXTROMETHORPHAN HYDROBROMIDE\DOXYLAMINE\EPHEDRINE SULFATE
     Indication: Product used for unknown indication
     Dosage: UNK, QD, 0.5 BOTTLE(S), LIKELY EXPOSURE, 1 ONLY
     Route: 048
     Dates: start: 20251207, end: 20251207

REACTIONS (4)
  - Suicide attempt [Unknown]
  - Intentional self-injury [Unknown]
  - Intentional overdose [Unknown]
  - Intentional product use issue [Unknown]

NARRATIVE: CASE EVENT DATE: 20251207
